FAERS Safety Report 23569194 (Version 2)
Quarter: 2024Q1

REPORT INFORMATION
  Report Type: Spontaneous
  Country: GB (occurrence: GB)
  Receive Date: 20240227
  Receipt Date: 20240327
  Transmission Date: 20240410
  Serious: Yes (Hospitalization)
  Sender: FDA-Public Use
  Company Number: GB-AMGEN-GBRSP2024036699

PATIENT
  Sex: Female

DRUGS (1)
  1. ARANESP [Suspect]
     Active Substance: DARBEPOETIN ALFA
     Indication: Product used for unknown indication
     Dosage: 80 MICROGRAM/0.4 MILLILITER, Q4WK
     Route: 058

REACTIONS (2)
  - Calciphylaxis [Recovered/Resolved with Sequelae]
  - Dialysis [Recovered/Resolved with Sequelae]
